FAERS Safety Report 11723125 (Version 1)
Quarter: 2015Q4

REPORT INFORMATION
  Report Type: Spontaneous
  Country: None (occurrence: None)
  Receive Date: 20151110
  Receipt Date: 20151110
  Transmission Date: 20160304
  Serious: No
  Sender: FDA-Public Use
  Company Number: None

PATIENT
  Age: 43 Year
  Sex: Female

DRUGS (8)
  1. METROGEL [Concomitant]
     Active Substance: METRONIDAZOLE
  2. ALEVE [Concomitant]
     Active Substance: NAPROXEN SODIUM
  3. IBUPROFIN [Concomitant]
  4. BENADRYL [Concomitant]
     Active Substance: DIPHENHYDRAMINE HYDROCHLORIDE
  5. LO LOESTRIN FE [Concomitant]
     Active Substance: ETHINYL ESTRADIOL\NORETHINDRONE ACETATE
  6. CLARITIN [Concomitant]
     Active Substance: LORATADINE
  7. MIRVASO [Suspect]
     Active Substance: BRIMONIDINE TARTRATE
  8. FINACEA [Concomitant]
     Active Substance: AZELAIC ACID

REACTIONS (2)
  - Flushing [None]
  - Rebound effect [None]

NARRATIVE: CASE EVENT DATE: 20151109
